FAERS Safety Report 8237400-8 (Version None)
Quarter: 2012Q1

REPORT INFORMATION
  Report Type: 
  Country: None (occurrence: None)
  Receive Date: 20120327
  Receipt Date: 20120321
  Transmission Date: 20120608
  Serious: Yes (Death, Hospitalization, Other)
  Sender: FDA-Public Use
  Company Number: US-ELI_LILLY_AND_COMPANY-US201203006172

PATIENT
  Sex: Male

DRUGS (2)
  1. CISPLATIN [Concomitant]
     Dosage: UNK, UNKNOWN
  2. ALIMTA [Suspect]
     Indication: LUNG NEOPLASM MALIGNANT
     Dosage: 830 MG, UNKNOWN
     Dates: start: 20120305

REACTIONS (4)
  - PNEUMONIA ASPIRATION [None]
  - VIRAL INFECTION [None]
  - DEATH [None]
  - RESPIRATORY FAILURE [None]
